FAERS Safety Report 5915891-2 (Version None)
Quarter: 2008Q4

REPORT INFORMATION
  Report Type: 
  Country: None (occurrence: None)
  Receive Date: 20081010
  Receipt Date: 20080930
  Transmission Date: 20090506
  Serious: Yes (Life-Threatening)
  Sender: FDA-Public Use
  Company Number: GB-PFIZER INC-2008082944

PATIENT
  Age: 61 Year
  Sex: Female

DRUGS (6)
  1. EPIRUBICIN HYDROCHLORIDE [Suspect]
     Indication: BREAST CANCER
     Dosage: FREQ:EVERY 3 WEEKS
     Route: 042
     Dates: start: 20060601, end: 20060901
  2. CYCLOPHOSPHAMIDE [Suspect]
     Indication: BREAST CANCER
     Dosage: FREQ:EVERY 3 WEEKS
     Route: 042
     Dates: start: 20060601, end: 20060901
  3. FLUOROURACIL [Suspect]
     Indication: BREAST CANCER
     Dosage: FREQ:EVERY 3 WEEKS
     Route: 042
  4. DOCETAXEL [Suspect]
     Indication: BREAST CANCER
     Dates: end: 20061101
  5. LETROZOLE [Suspect]
     Indication: BREAST CANCER
  6. NEUPOGEN [Suspect]
     Indication: BREAST CANCER

REACTIONS (1)
  - PROGRESSIVE MULTIFOCAL LEUKOENCEPHALOPATHY [None]
